FAERS Safety Report 6050118-5 (Version None)
Quarter: 2009Q1

REPORT INFORMATION
  Report Type: 
  Country: None (occurrence: None)
  Receive Date: 20090121
  Receipt Date: 20090109
  Transmission Date: 20090719
  Serious: Yes (Hospitalization)
  Sender: FDA-Public Use
  Company Number: 2008-04588

PATIENT
  Age: 41 Year
  Sex: Male
  Weight: 91 kg

DRUGS (12)
  1. VELCADE [Suspect]
     Indication: AMYLOIDOSIS
     Dosage: 1 MG/M2
     Dates: start: 20081122, end: 20081125
  2. MELPHALAN(MELPHALAN) VIAL [Suspect]
     Indication: AMYLOIDOSIS
     Dosage: 70 MG/M2
     Dates: start: 20080915, end: 20081125
  3. DEXAMETHASONE TAB [Suspect]
     Indication: AMYLOIDOSIS
     Dosage: 20 MG
     Dates: start: 20080915, end: 20081125
  4. ACYCLOVIR [Concomitant]
  5. DALTEPARIN SODIUM [Concomitant]
  6. TORSEMIDE [Concomitant]
  7. PANTOPRAZOLE SODIUM [Concomitant]
  8. VANCOMYCIN [Concomitant]
  9. POTASSIUM CHLORIDE [Concomitant]
  10. MAGNESIUM (MAGNESIUM) [Concomitant]
  11. ERYTHROMYCIN [Concomitant]
  12. INSPRA [Concomitant]

REACTIONS (3)
  - CARDIAC ARREST [None]
  - INTERNATIONAL NORMALISED RATIO INCREASED [None]
  - VISUAL IMPAIRMENT [None]
